FAERS Safety Report 9694178 (Version 2)
Quarter: 2013Q4

REPORT INFORMATION
  Report Type: Report from Study
  Country: AU (occurrence: AU)
  Receive Date: 20131118
  Receipt Date: 20131118
  Transmission Date: 20140711
  Serious: Yes (Death, Other)
  Sender: FDA-Public Use
  Company Number: AU-INCYTE CORPORATION-2013IN002226

PATIENT
  Sex: Male

DRUGS (2)
  1. INC424 [Suspect]
     Indication: CHROMOSOME ANALYSIS ABNORMAL
     Dosage: 35 MG, BID
     Route: 048
  2. INC424 [Suspect]
     Dosage: 10 MG, BID

REACTIONS (5)
  - Endocarditis staphylococcal [Fatal]
  - Acute lymphocytic leukaemia [Fatal]
  - Sepsis [Fatal]
  - Bone marrow failure [Unknown]
  - Renal disorder [None]
